FAERS Safety Report 25343477 (Version 1)
Quarter: 2025Q2

REPORT INFORMATION
  Report Type: Spontaneous
  Country: RU (occurrence: RU)
  Receive Date: 20250521
  Receipt Date: 20250521
  Transmission Date: 20250717
  Serious: Yes (Disabling)
  Sender: VERTEX
  Company Number: RU-VERTEX PHARMACEUTICALS-2025-008140

PATIENT
  Age: 14 Year
  Sex: Male
  Weight: 61 kg

DRUGS (8)
  1. TRIKAFTA [Suspect]
     Active Substance: ELEXACAFTOR\IVACAFTOR\TEZACAFTOR
     Indication: Cystic fibrosis
     Route: 048
     Dates: start: 20220901, end: 20250421
  2. COLISTIMETHATE [Concomitant]
     Active Substance: COLISTIMETHATE SODIUM
     Dates: start: 20250506
  3. CREON [Concomitant]
     Active Substance: PANCRELIPASE AMYLASE\PANCRELIPASE LIPASE\PANCRELIPASE PROTEASE
     Dates: start: 2021
  4. Exhol [Concomitant]
     Dates: start: 2021
  5. Aquadetrim [Concomitant]
  6. FLUIMUCIL [Concomitant]
     Active Substance: ACETYLCYSTEINE
     Dates: start: 2021
  7. TOBRAMYCIN [Concomitant]
     Active Substance: TOBRAMYCIN
     Dates: start: 20250428, end: 20250506
  8. Tigerase [Concomitant]
     Dates: start: 2021

REACTIONS (1)
  - Toxic cataract [Not Recovered/Not Resolved]

NARRATIVE: CASE EVENT DATE: 20250502
